FAERS Safety Report 23919484 (Version 1)
Quarter: 2024Q2

REPORT INFORMATION
  Report Type: Spontaneous
  Country: EG (occurrence: EG)
  Receive Date: 20240530
  Receipt Date: 20240530
  Transmission Date: 20240716
  Serious: Yes (Hospitalization)
  Sender: FDA-Public Use
  Company Number: EG-Eisai-EC-2024-166215

PATIENT
  Age: 61 Year
  Sex: Male

DRUGS (13)
  1. LENVIMA [Suspect]
     Active Substance: LENVATINIB
     Indication: Hepatocellular carcinoma
     Route: 048
     Dates: start: 20240314, end: 20240414
  2. TORSEMIDE [Suspect]
     Active Substance: TORSEMIDE
     Indication: Liver disorder
     Route: 048
     Dates: end: 202404
  3. TORSEMIDE [Suspect]
     Active Substance: TORSEMIDE
     Route: 048
     Dates: start: 202404
  4. MORLIMIN [Concomitant]
     Indication: Product used for unknown indication
     Route: 048
  5. COLONA [Concomitant]
     Indication: Product used for unknown indication
     Route: 048
  6. PUMPIZAN [Concomitant]
     Indication: Product used for unknown indication
     Route: 048
  7. DOLCYL [Concomitant]
     Indication: Product used for unknown indication
     Route: 048
  8. GOUTIFADE [Concomitant]
     Indication: Product used for unknown indication
     Route: 048
  9. GAPTIN [Concomitant]
     Indication: Product used for unknown indication
     Route: 048
  10. SPECTON [Concomitant]
     Indication: Product used for unknown indication
     Route: 048
  11. DOLIPRANE [Concomitant]
     Active Substance: ACETAMINOPHEN
     Indication: Product used for unknown indication
     Route: 048
  12. LAXOLAC [Concomitant]
     Indication: Product used for unknown indication
     Dosage: 1 SPOON
     Route: 048
  13. LOLAWEST [Concomitant]
     Indication: Product used for unknown indication
     Route: 048

REACTIONS (3)
  - Hepatic encephalopathy [Recovered/Resolved]
  - Altered state of consciousness [Recovered/Resolved]
  - Hypokalaemia [Recovered/Resolved]

NARRATIVE: CASE EVENT DATE: 20240424
